FAERS Safety Report 6604215-3 (Version None)
Quarter: 2010Q1

REPORT INFORMATION
  Report Type: 
  Country: None (occurrence: None)
  Receive Date: 20100226
  Receipt Date: 20090629
  Transmission Date: 20100710
  Serious: No
  Sender: FDA-Public Use
  Company Number: A0795580A

PATIENT
  Age: 82 Year
  Sex: Female

DRUGS (1)
  1. LAMICTAL CD [Suspect]
     Dosage: 25MG PER DAY
     Route: 048

REACTIONS (1)
  - DIARRHOEA [None]
